FAERS Safety Report 18023729 (Version 1)
Quarter: 2020Q3

REPORT INFORMATION
  Report Type: Report from Study
  Country: US (occurrence: US)
  Receive Date: 20200714
  Receipt Date: 20200714
  Transmission Date: 20201103
  Serious: Yes (Death)
  Sender: FDA-Public Use
  Company Number: US-ACTELION-A-NJ2016-130016

PATIENT
  Age: 80 Year
  Sex: Male
  Weight: 80.27 kg

DRUGS (5)
  1. REVATIO [Concomitant]
     Active Substance: SILDENAFIL CITRATE
  2. VENTAVIS [Suspect]
     Active Substance: ILOPROST
     Dosage: 5.0 MCG, 6?9X/DAILY
     Route: 055
  3. COUMADIN [Concomitant]
     Active Substance: WARFARIN SODIUM
  4. LETAIRIS [Concomitant]
     Active Substance: AMBRISENTAN
  5. VENTAVIS [Suspect]
     Active Substance: ILOPROST
     Indication: PULMONARY ARTERIAL HYPERTENSION
     Dosage: 5 MCG, 6?9 X/DAY
     Route: 055
     Dates: start: 20151229

REACTIONS (15)
  - Gingivitis [Unknown]
  - Cough [Unknown]
  - Weight increased [Unknown]
  - Syncope [Unknown]
  - Flushing [Unknown]
  - Skin laceration [Unknown]
  - Death [Fatal]
  - Insomnia [Unknown]
  - Sinus congestion [Unknown]
  - Nipple pain [Unknown]
  - Sinus disorder [Unknown]
  - Anxiety [Unknown]
  - Gout [Unknown]
  - Anaemia [Unknown]
  - Fatigue [Unknown]

NARRATIVE: CASE EVENT DATE: 20160701
